FAERS Safety Report 7448628-9 (Version None)
Quarter: 2011Q2

REPORT INFORMATION
  Report Type: 
  Country: None (occurrence: None)
  Receive Date: 20110429
  Receipt Date: 20100602
  Transmission Date: 20111010
  Serious: No
  Sender: FDA-Public Use
  Company Number: US-ASTRAZENECA-2010SE25426

PATIENT
  Age: 79 Year
  Sex: Female
  Weight: 109.3 kg

DRUGS (8)
  1. NEXIUM [Suspect]
     Indication: ULCER
     Route: 048
     Dates: start: 20020101
  2. TRAMA/ASAP [Concomitant]
  3. LYRICA [Concomitant]
  4. NASAL SPRAY [Concomitant]
  5. NEXIUM [Suspect]
     Indication: GASTROOESOPHAGEAL REFLUX DISEASE
     Route: 048
     Dates: start: 20020101
  6. HIGH BLOOD PRESSURE PILL [Concomitant]
  7. ALLERGY-D [Concomitant]
  8. LIPITOR [Concomitant]

REACTIONS (4)
  - DRUG DOSE OMISSION [None]
  - WEIGHT INCREASED [None]
  - ALOPECIA [None]
  - GASTRIC PH DECREASED [None]
